FAERS Safety Report 8336755-3 (Version None)
Quarter: 2012Q2

REPORT INFORMATION
  Report Type: 
  Country: None (occurrence: None)
  Receive Date: 20120504
  Receipt Date: 20120424
  Transmission Date: 20120825
  Serious: Yes (Other)
  Sender: FDA-Public Use
  Company Number: CA-JNJFOC-20120101002

PATIENT
  Sex: Female
  Weight: 74.5 kg

DRUGS (8)
  1. CALCIUM [Concomitant]
     Route: 065
  2. REMICADE [Suspect]
     Indication: CROHN'S DISEASE
     Route: 042
     Dates: start: 20120103
  3. REMICADE [Suspect]
     Route: 042
     Dates: start: 20120228
  4. VITAMIN D [Concomitant]
     Route: 065
  5. MERCAPTOPURINE [Concomitant]
     Route: 065
  6. REMICADE [Suspect]
     Route: 042
     Dates: start: 20090901
  7. CETIRIZINE HCL [Concomitant]
     Dosage: 1-2 TABLET DAILY, 1-2 WEKS PRIOR TO INFLIXIMAB
     Route: 065
  8. VITAMIN C [Concomitant]
     Route: 065

REACTIONS (8)
  - MALAISE [None]
  - ABDOMINAL PAIN [None]
  - FATIGUE [None]
  - SMALL INTESTINAL OBSTRUCTION [None]
  - WEIGHT DECREASED [None]
  - NAUSEA [None]
  - ASTHENIA [None]
  - VOMITING [None]
